FAERS Safety Report 7015639-7 (Version None)
Quarter: 2010Q3

REPORT INFORMATION
  Report Type: 
  Country: None (occurrence: None)
  Receive Date: 20100927
  Receipt Date: 20100923
  Transmission Date: 20110219
  Serious: Yes (Other)
  Sender: FDA-Public Use
  Company Number: CA-BAYER-201016060BCC

PATIENT
  Age: 81 Year
  Sex: Male

DRUGS (10)
  1. ASPIRIN [Suspect]
     Indication: PRODUCT USED FOR UNKNOWN INDICATION
     Route: 065
  2. ALLOPURINOL [Suspect]
  3. CLONAZEPAM [Suspect]
     Route: 065
  4. EPREX STERILE SOLUTION [Suspect]
     Route: 042
  5. FUROSEMIDE [Suspect]
     Route: 065
  6. IRON [Suspect]
     Route: 042
  7. METOPROLOL TARTRATE [Suspect]
     Route: 065
  8. PRIVINIL [Suspect]
     Dosage: AS USED: 2.5. MG  UNIT DOSE: 2.5 MG
     Route: 048
  9. THERAPY UNSPECIFIED [Suspect]
     Route: 065
  10. WARFARIN [Suspect]
     Route: 065

REACTIONS (4)
  - ABDOMINAL PAIN [None]
  - DIARRHOEA [None]
  - HYPERSENSITIVITY [None]
  - HYPOTENSION [None]
